FAERS Safety Report 19519135 (Version 1)
Quarter: 2021Q3

REPORT INFORMATION
  Report Type: Spontaneous
  Country: US (occurrence: US)
  Receive Date: 20210709
  Receipt Date: 20210709
  Transmission Date: 20211014
  Serious: Yes (Hospitalization)
  Sender: FDA-Public Use
  Company Number: None

PATIENT
  Sex: Male

DRUGS (1)
  1. CAPECITABINE 500 MG NOVADOZ PHARMACEUTICALS [Suspect]
     Active Substance: CAPECITABINE
     Indication: RECTAL CANCER
     Dosage: ? ON  HOLD
     Route: 048
     Dates: start: 20200323

REACTIONS (2)
  - Cardiac failure congestive [None]
  - Therapy interrupted [None]

NARRATIVE: CASE EVENT DATE: 20210604
